FAERS Safety Report 9402973 (Version 1)
Quarter: 2013Q3

REPORT INFORMATION
  Report Type: Report from Study
  Country: US (occurrence: US)
  Receive Date: 20130716
  Receipt Date: 20130716
  Transmission Date: 20140515
  Serious: Yes (Other)
  Sender: FDA-Public Use
  Company Number: US-ELI_LILLY_AND_COMPANY-US201307003437

PATIENT
  Sex: Female

DRUGS (2)
  1. DULOXETINE HYDROCHLORIDE [Suspect]
     Indication: DEPRESSION
     Dosage: 120 MG, QD
  2. DULOXETINE HYDROCHLORIDE [Suspect]
     Indication: FIBROMYALGIA

REACTIONS (3)
  - Suicidal ideation [Unknown]
  - Stress [Not Recovered/Not Resolved]
  - Drug withdrawal syndrome [Unknown]
